FAERS Safety Report 13094987 (Version 9)
Quarter: 2019Q1

REPORT INFORMATION
  Report Type: Spontaneous
  Country: JP (occurrence: JP)
  Receive Date: 20170106
  Receipt Date: 20190313
  Transmission Date: 20190417
  Serious: Yes (Death, Hospitalization)
  Sender: FDA-Public Use
  Company Number: JP-UNITED THERAPEUTICS-UNT-2016-002193

PATIENT
  Age: 45 Year
  Sex: Male
  Weight: 66.7 kg

DRUGS (15)
  1. REMODULIN [Suspect]
     Active Substance: TREPROSTINIL
     Indication: PULMONARY HYPERTENSION
     Dosage: 780 ?G, UNK
     Route: 058
     Dates: start: 20160204, end: 20171003
  2. REMODULIN [Suspect]
     Active Substance: TREPROSTINIL
     Indication: PULMONARY VENO-OCCLUSIVE DISEASE
     Dosage: UNK
     Route: 058
     Dates: start: 20171002, end: 20171003
  3. CARELOAD [Concomitant]
     Active Substance: BERAPROST SODIUM
     Indication: PULMONARY VENO-OCCLUSIVE DISEASE
     Dosage: UNK
     Route: 048
     Dates: start: 201502, end: 20160922
  4. DIART [Concomitant]
     Active Substance: AZOSEMIDE
     Indication: PULMONARY VENO-OCCLUSIVE DISEASE
     Dosage: 90 MG, QD
     Route: 048
     Dates: end: 20171003
  5. REMODULIN [Suspect]
     Active Substance: TREPROSTINIL
     Dosage: 0.023 ?G/KG, CONTINUING
     Route: 058
  6. REMODULIN [Suspect]
     Active Substance: TREPROSTINIL
     Dosage: 0.063 ?G/KG, CONTINUING
     Route: 058
  7. TRACLEER [Concomitant]
     Active Substance: BOSENTAN
     Indication: PULMONARY VENO-OCCLUSIVE DISEASE
     Dosage: UNK
     Route: 048
     Dates: start: 201404, end: 20171003
  8. REVATIO [Concomitant]
     Active Substance: SILDENAFIL CITRATE
     Indication: PULMONARY VENO-OCCLUSIVE DISEASE
     Dosage: 20 MG, Q8H
     Route: 048
     Dates: start: 201408, end: 20171003
  9. SAMSCA [Concomitant]
     Active Substance: TOLVAPTAN
     Indication: PRODUCT USED FOR UNKNOWN INDICATION
     Dosage: 7.5 MG, Q12H
     Route: 048
     Dates: end: 20171003
  10. REMODULIN [Suspect]
     Active Substance: TREPROSTINIL
     Dosage: 0.075 ?G/KG, CONTINUING
     Route: 058
  11. LASIX [Concomitant]
     Active Substance: FUROSEMIDE
     Indication: PULMONARY VENO-OCCLUSIVE DISEASE
     Dosage: 4 MG, Q12H
     Route: 048
     Dates: start: 20160601, end: 20171003
  12. FLUITRAN [Concomitant]
     Active Substance: TRICHLORMETHIAZIDE
     Indication: PRODUCT USED FOR UNKNOWN INDICATION
     Dosage: 2 MG, QD
     Route: 048
     Dates: end: 20171003
  13. SPIRONOLACTONE. [Concomitant]
     Active Substance: SPIRONOLACTONE
     Indication: PRODUCT USED FOR UNKNOWN INDICATION
     Dosage: 25 MG, QD
     Route: 048
     Dates: end: 20171003
  14. REMODULIN [Suspect]
     Active Substance: TREPROSTINIL
     Dosage: 0.090 ?G/KG, CONTINUING
     Route: 058
  15. TRAMCET [Concomitant]
     Active Substance: ACETAMINOPHEN\TRAMADOL
     Indication: PROPHYLAXIS
     Dosage: 1 DF, Q8H
     Route: 048
     Dates: end: 20171003

REACTIONS (12)
  - Pulmonary arterial hypertension [Fatal]
  - Dyspnoea [Recovered/Resolved]
  - Infusion site erythema [Recovering/Resolving]
  - Platelet count decreased [Not Recovered/Not Resolved]
  - Weight decreased [Unknown]
  - Infusion site pruritus [Recovering/Resolving]
  - Dermatitis contact [Unknown]
  - Weight increased [Recovered/Resolved]
  - Oedema peripheral [Recovered/Resolved]
  - Infusion site pain [Recovering/Resolving]
  - Right ventricular failure [Fatal]
  - Cardiac failure [Recovered/Resolved]

NARRATIVE: CASE EVENT DATE: 20160212
